FAERS Safety Report 9850251 (Version 1)
Quarter: 2014Q1

REPORT INFORMATION
  Report Type: Spontaneous
  Country: ES (occurrence: ES)
  Receive Date: 20140128
  Receipt Date: 20140128
  Transmission Date: 20141002
  Serious: Yes (Hospitalization, Other)
  Sender: FDA-Public Use
  Company Number: PHHY2014ES007235

PATIENT
  Age: 75 Year
  Sex: Female

DRUGS (9)
  1. DIGOXIN [Suspect]
     Indication: ATRIAL FIBRILLATION
     Dosage: 0.125 MG, Q72H
     Route: 042
  2. DIGOXIN [Suspect]
     Dosage: 0.25 MG, Q72H
  3. HYDRALAZINE [Suspect]
     Indication: HYPERTENSION
     Dosage: 50 MG, Q8H
  4. AMIODARONE [Suspect]
     Indication: ATRIAL FIBRILLATION
     Route: 042
  5. METFORMIN AND SITAGLIPTIN [Suspect]
     Indication: DIABETES MELLITUS
     Dosage: 1000 MG, EVERY 24 HRS
  6. FORMOTEROL W/BUDESONIDE [Suspect]
     Route: 055
  7. INSULIN INSULATARD [Concomitant]
     Indication: DIABETES MELLITUS
     Dosage: 36 IU, EVERY 24 HOURS
  8. INSULIN INSULATARD [Concomitant]
     Dosage: 38 IU, EVERY 24 HOURS
  9. ACENOCOUMAROL [Concomitant]

REACTIONS (15)
  - Renal failure chronic [Unknown]
  - Renal impairment [Recovering/Resolving]
  - Malaise [Recovering/Resolving]
  - Dyspnoea exertional [Recovering/Resolving]
  - Nausea [Recovering/Resolving]
  - Glomerular vascular disorder [Unknown]
  - Hypotension [Recovered/Resolved]
  - Atrial fibrillation [Recovering/Resolving]
  - Tachycardia [Recovering/Resolving]
  - Bundle branch block right [Recovering/Resolving]
  - Cardiomegaly [Not Recovered/Not Resolved]
  - Pulmonary hypertension [Recovering/Resolving]
  - Coronary artery disease [Recovering/Resolving]
  - Overdose [Unknown]
  - Drug ineffective [Unknown]
